FAERS Safety Report 19733204 (Version 1)
Quarter: 2021Q3

REPORT INFORMATION
  Report Type: Spontaneous
  Country: US (occurrence: US)
  Receive Date: 20210823
  Receipt Date: 20210823
  Transmission Date: 20211014
  Serious: Yes (Death, Hospitalization, Other)
  Sender: FDA-Public Use
  Company Number: US-BRISTOL-MYERS SQUIBB COMPANY-BMS-2021-082214

PATIENT
  Age: 55 Year
  Sex: Female
  Weight: 86.64 kg

DRUGS (2)
  1. ELIQUIS [Suspect]
     Active Substance: APIXABAN
     Indication: THROMBOSIS PROPHYLAXIS
     Dosage: 5 MILLIGRAM, BID
     Route: 048
     Dates: start: 20210421
  2. ONUREG [Concomitant]
     Active Substance: AZACITIDINE
     Indication: MYELODYSPLASTIC SYNDROME
     Dosage: 300 MILLIGRAM, DAILY
     Route: 065
     Dates: start: 20210528

REACTIONS (2)
  - Cardiac failure congestive [Fatal]
  - Pneumonia [Fatal]

NARRATIVE: CASE EVENT DATE: 20210812
